FAERS Safety Report 8477065-3 (Version None)
Quarter: 2012Q2

REPORT INFORMATION
  Report Type: 
  Country: None (occurrence: None)
  Receive Date: 20120629
  Receipt Date: 20120625
  Transmission Date: 20120825
  Serious: Yes (Other)
  Sender: FDA-Public Use
  Company Number: US-PFIZER INC-2012152452

PATIENT
  Sex: Female
  Weight: 61.224 kg

DRUGS (2)
  1. SYNTHROID [Concomitant]
     Dosage: 100 UG, 1X/DAY
  2. LYRICA [Suspect]
     Indication: PAIN IN EXTREMITY
     Dosage: 75 MG, 3X/DAY
     Route: 048
     Dates: start: 20120619, end: 20120625

REACTIONS (3)
  - DIZZINESS [None]
  - VERTIGO [None]
  - LOSS OF CONSCIOUSNESS [None]
